FAERS Safety Report 6783994-9 (Version None)
Quarter: 2010Q2

REPORT INFORMATION
  Report Type: 
  Country: None (occurrence: None)
  Receive Date: 20100622
  Receipt Date: 20100614
  Transmission Date: 20101027
  Serious: Yes (Other)
  Sender: FDA-Public Use
  Company Number: CH-ASTRAZENECA-2010SE26109

PATIENT
  Age: 21295 Day
  Sex: Male
  Weight: 90 kg

DRUGS (1)
  1. ATACAND [Suspect]
     Indication: HYPERTENSION
     Route: 048
     Dates: start: 20100520, end: 20100531

REACTIONS (2)
  - CHEST PAIN [None]
  - RESPIRATORY DISORDER [None]
